FAERS Safety Report 6770059-5 (Version None)
Quarter: 2010Q2

REPORT INFORMATION
  Report Type: 
  Country: None (occurrence: None)
  Receive Date: 20100615
  Receipt Date: 20100609
  Transmission Date: 20101027
  Serious: Yes (Hospitalization)
  Sender: FDA-Public Use
  Company Number: GXKR2010AT05821

PATIENT
  Age: 54 Year
  Sex: Female

DRUGS (2)
  1. AMITRIPTYLINE (NGX) [Suspect]
     Indication: SLEEP DISORDER
     Dosage: 25 MG, QD (IN EVENING)
  2. AMITRIPTYLINE (NGX) [Suspect]
     Indication: BONE PAIN
     Dosage: 50 MG, QD (IN EVENING)

REACTIONS (1)
  - SUICIDAL IDEATION [None]
